FAERS Safety Report 11645641 (Version 1)
Quarter: 2015Q4

REPORT INFORMATION
  Report Type: Spontaneous
  Country: US (occurrence: US)
  Receive Date: 20151020
  Receipt Date: 20151020
  Transmission Date: 20160304
  Serious: Yes (Other)
  Sender: FDA-Public Use
  Company Number: US-BAYER-2015-445967

PATIENT
  Age: 50 Year
  Sex: Female
  Weight: 77.98 kg

DRUGS (1)
  1. LOTRIMIN AF ANTIFUNGAL [Suspect]
     Active Substance: MICONAZOLE NITRATE
     Indication: ANTIFUNGAL PROPHYLAXIS
     Dosage: UNK
     Route: 061
     Dates: start: 20151011, end: 20151012

REACTIONS (4)
  - Application site erythema [Not Recovered/Not Resolved]
  - Burns second degree [Not Recovered/Not Resolved]
  - Application site pain [Not Recovered/Not Resolved]
  - Blister [Not Recovered/Not Resolved]

NARRATIVE: CASE EVENT DATE: 20151012
